FAERS Safety Report 21798092 (Version 1)
Quarter: 2022Q4

REPORT INFORMATION
  Report Type: Report from Study
  Country: US (occurrence: US)
  Receive Date: 20221230
  Receipt Date: 20221230
  Transmission Date: 20230113
  Serious: No
  Sender: FDA-Public Use
  Company Number: US-ABBVIE-4252707

PATIENT
  Sex: Female

DRUGS (2)
  1. HUMIRA [Suspect]
     Active Substance: ADALIMUMAB
     Indication: Rheumatoid arthritis
     Dosage: CITRATE FREE, STOP DATE 2022 AND EVENT ONSET AS 2022
     Route: 058
     Dates: start: 20220608
  2. HUMIRA [Suspect]
     Active Substance: ADALIMUMAB
     Dosage: CITARTE FREE
     Route: 058
     Dates: start: 202211

REACTIONS (1)
  - Drug ineffective [Unknown]
